FAERS Safety Report 5066688-X (Version None)
Quarter: 2006Q3

REPORT INFORMATION
  Report Type: 
  Country: None (occurrence: None)
  Receive Date: 20060710
  Receipt Date: 20060224
  Transmission Date: 20061208
  Serious: Yes (Other)
  Sender: FDA-Public Use
  Company Number: PHEH2006US02314

PATIENT
  Age: 76 Year
  Sex: Male

DRUGS (3)
  1. GLEEVEC [Suspect]
     Indication: GASTROINTESTINAL STROMAL TUMOUR
     Dosage: SEE IMAGE
     Route: 048
     Dates: start: 20041201, end: 20050913
  2. GLEEVEC [Suspect]
     Indication: GASTROINTESTINAL STROMAL TUMOUR
     Dosage: SEE IMAGE
     Route: 048
     Dates: start: 20050914
  3. CHEMOTHERAPEUTICS, OTHER (CHEMOTHERAPEUTICS, OTHER) [Concomitant]

REACTIONS (1)
  - MALIGNANT NEOPLASM PROGRESSION [None]
